FAERS Safety Report 17225415 (Version 5)
Quarter: 2020Q3

REPORT INFORMATION
  Report Type: Report from Study
  Country: US (occurrence: US)
  Receive Date: 20200102
  Receipt Date: 20200814
  Transmission Date: 20201102
  Serious: No
  Sender: FDA-Public Use
  Company Number: US-SA-2019SA362181

PATIENT

DRUGS (19)
  1. BACLOFEN. [Concomitant]
     Active Substance: BACLOFEN
     Route: 065
  2. OMEPRAZOLE. [Concomitant]
     Active Substance: OMEPRAZOLE
     Route: 065
  3. AMANTADINE HCL [Concomitant]
     Active Substance: AMANTADINE HYDROCHLORIDE
     Dosage: UNK
     Route: 065
  4. CLONAZEPAM. [Concomitant]
     Active Substance: CLONAZEPAM
  5. NUVIGIL [Concomitant]
     Active Substance: ARMODAFINIL
     Route: 065
  6. RANITIDINE. [Concomitant]
     Active Substance: RANITIDINE
  7. SUMATRIPTAN. [Concomitant]
     Active Substance: SUMATRIPTAN
  8. TECFIDERA [Concomitant]
     Active Substance: DIMETHYL FUMARATE
  9. SINGULAIR [Concomitant]
     Active Substance: MONTELUKAST SODIUM
     Route: 065
  10. MELOXICAM. [Concomitant]
     Active Substance: MELOXICAM
     Route: 065
  11. OXYBUTYNIN. [Concomitant]
     Active Substance: OXYBUTYNIN CHLORIDE
  12. PREDNISONE. [Concomitant]
     Active Substance: PREDNISONE
     Route: 065
  13. TOPIRAMATE. [Concomitant]
     Active Substance: TOPIRAMATE
  14. FIORICET [Concomitant]
     Active Substance: ACETAMINOPHEN\BUTALBITAL\CAFFEINE
     Route: 065
  15. GABAPENTIN. [Concomitant]
     Active Substance: GABAPENTIN
     Route: 065
  16. PROPRANOLOL [Concomitant]
     Active Substance: PROPRANOLOL HYDROCHLORIDE
  17. TERIFLUNOMIDE. [Suspect]
     Active Substance: TERIFLUNOMIDE
     Indication: MULTIPLE SCLEROSIS
     Dosage: 14 MG, QD
     Route: 048
  18. TERIFLUNOMIDE. [Suspect]
     Active Substance: TERIFLUNOMIDE
     Dosage: 14 MG, QD
     Route: 048
     Dates: start: 20200328
  19. BUTALBITAL AND ACETAMINOPHEN [Concomitant]
     Active Substance: ACETAMINOPHEN\BUTALBITAL
     Route: 065

REACTIONS (7)
  - Corrective lens user [Not Recovered/Not Resolved]
  - Product dose omission in error [Unknown]
  - Intentional dose omission [Unknown]
  - Memory impairment [Not Recovered/Not Resolved]
  - Intentional dose omission [Unknown]
  - Fatigue [Not Recovered/Not Resolved]
  - Neuralgia [Not Recovered/Not Resolved]

NARRATIVE: CASE EVENT DATE: 2020
